FAERS Safety Report 17112876 (Version 1)
Quarter: 2019Q4

REPORT INFORMATION
  Report Type: Other
  Country: US (occurrence: US)
  Receive Date: 20191204
  Receipt Date: 20191204
  Transmission Date: 20200122
  Serious: Yes (Hospitalization)
  Sender: FDA-Public Use
  Company Number: US-GUTHY-RENKER, LLC-2077466

PATIENT
  Age: 55 Year
  Sex: Female

DRUGS (2)
  1. MEANINGFUL BEAUTY ENVIRONMENTAL PROTECTING MOISTURIZER SPF 30 [Suspect]
     Active Substance: AVOBENZONE\HOMOSALATE\OCTISALATE\OXYBENZONE
     Dates: start: 20191112, end: 20191117
  2. MEANINGFUL BEAUTY DARK SPOT CORRECTING TREATMENT [Suspect]
     Active Substance: HYDROQUINONE
     Indication: SKIN DISCOLOURATION
     Dates: start: 20191112, end: 20191117

REACTIONS (1)
  - Rash [Recovered/Resolved]

NARRATIVE: CASE EVENT DATE: 20191112
